FAERS Safety Report 7109371-9 (Version None)
Quarter: 2010Q4

REPORT INFORMATION
  Report Type: 
  Country: None (occurrence: None)
  Receive Date: 20101118
  Receipt Date: 20101110
  Transmission Date: 20110411
  Serious: Yes (Hospitalization, Other)
  Sender: FDA-Public Use
  Company Number: US-BIOGENIDEC-2010BI039346

PATIENT
  Sex: Female
  Weight: 68 kg

DRUGS (2)
  1. AVONEX [Suspect]
     Indication: MULTIPLE SCLEROSIS
     Route: 030
     Dates: start: 20041101, end: 20090201
  2. LAMICTAL [Concomitant]
     Indication: CONVULSION
     Route: 048

REACTIONS (7)
  - ABASIA [None]
  - BACK DISORDER [None]
  - CONVULSION [None]
  - HYPERSENSITIVITY [None]
  - NERVE INJURY [None]
  - PAIN IN EXTREMITY [None]
  - SPINAL COLUMN INJURY [None]
